FAERS Safety Report 20895175 (Version 1)
Quarter: 2022Q2

REPORT INFORMATION
  Report Type: Spontaneous
  Country: US (occurrence: US)
  Receive Date: 20220531
  Receipt Date: 20220531
  Transmission Date: 20220721
  Serious: No
  Sender: FDA-Public Use
  Company Number: US-BAYER-2022A074760

PATIENT

DRUGS (1)
  1. CLARITIN LIQUI-GELS [Suspect]
     Active Substance: LORATADINE
     Dosage: 1 DF
     Dates: start: 20220524

REACTIONS (3)
  - Insomnia [Unknown]
  - Night sweats [Unknown]
  - Therapeutic product effect incomplete [Unknown]
